FAERS Safety Report 14340476 (Version 4)
Quarter: 2018Q1

REPORT INFORMATION
  Report Type: Spontaneous
  Country: IN (occurrence: IN)
  Receive Date: 20180101
  Receipt Date: 20180111
  Transmission Date: 20180509
  Serious: Yes (Death, Other)
  Sender: FDA-Public Use
  Company Number: IN-ABBVIE-17S-078-2208101-00

PATIENT
  Age: 2 Day
  Sex: Male
  Weight: .8 kg

DRUGS (4)
  1. SURVANTA [Suspect]
     Active Substance: BERACTANT
     Indication: NEONATAL RESPIRATORY DISTRESS SYNDROME
     Dosage: SINGLE DOSE
     Route: 039
     Dates: start: 20170603
  2. PIPZO/ AMILA [Concomitant]
     Indication: LOW BIRTH WEIGHT BABY
  3. PIPZO/ AMILA [Concomitant]
     Indication: NEONATAL RESPIRATORY DISTRESS SYNDROME
  4. PIPZO/ AMILA [Concomitant]
     Indication: PREMATURE BABY
     Route: 042
     Dates: start: 20170603

REACTIONS (1)
  - Pulmonary haemorrhage [Fatal]

NARRATIVE: CASE EVENT DATE: 20170605
